FAERS Safety Report 9385809 (Version 1)
Quarter: 2013Q3

REPORT INFORMATION
  Report Type: Report from Study
  Country: US (occurrence: US)
  Receive Date: 20130705
  Receipt Date: 20130705
  Transmission Date: 20140515
  Serious: Yes (Other)
  Sender: FDA-Public Use
  Company Number: US-ABBOTT-13P-163-1112761-00

PATIENT
  Age: 29 Year
  Sex: Male

DRUGS (2)
  1. HUMIRA [Suspect]
     Indication: PSORIASIS
     Dates: start: 2011
  2. HUMIRA [Suspect]
     Indication: PSORIASIS

REACTIONS (6)
  - Tendon rupture [Recovered/Resolved]
  - Psoriasis [Not Recovered/Not Resolved]
  - Injection site pain [Unknown]
  - Injection site pain [Unknown]
  - Incorrect dose administered [Unknown]
  - Injection site swelling [Recovered/Resolved]
